FAERS Safety Report 13463806 (Version 1)
Quarter: 2017Q2

REPORT INFORMATION
  Report Type: Spontaneous
  Country: US (occurrence: US)
  Receive Date: 20170420
  Receipt Date: 20170420
  Transmission Date: 20170830
  Serious: Yes (Hospitalization, Other)
  Sender: FDA-Public Use
  Company Number: US-ROCHE-649018

PATIENT
  Age: 28 Year
  Sex: Male
  Weight: 74.8 kg

DRUGS (4)
  1. ACCUTANE [Suspect]
     Active Substance: ISOTRETINOIN
     Indication: ACNE
     Dosage: TAKEN IN MORNING AND EVENING
     Route: 065
     Dates: start: 20001106, end: 200104
  2. ADVIL [Concomitant]
     Active Substance: IBUPROFEN
     Route: 065
  3. VITAMIN E [Concomitant]
     Active Substance: .ALPHA.-TOCOPHEROL
     Route: 065
  4. TYLENOL [Concomitant]
     Active Substance: ACETAMINOPHEN
     Route: 065

REACTIONS (7)
  - Pruritus [Unknown]
  - Depression [Unknown]
  - Lip dry [Unknown]
  - Inflammatory bowel disease [Unknown]
  - Blood cholesterol increased [Unknown]
  - Colitis ulcerative [Unknown]
  - Aphthous ulcer [Unknown]

NARRATIVE: CASE EVENT DATE: 20001120
